FAERS Safety Report 7325582-1 (Version None)
Quarter: 2011Q1

REPORT INFORMATION
  Report Type: 
  Country: None (occurrence: None)
  Receive Date: 20110302
  Receipt Date: 20110218
  Transmission Date: 20110831
  Serious: Yes (Other)
  Sender: FDA-Public Use
  Company Number: US-BAYER-2011-016672

PATIENT
  Sex: Female

DRUGS (2)
  1. MIRENA [Suspect]
     Indication: CONTRACEPTION
     Dosage: 20 MCG/24HR, CONT
     Route: 015
     Dates: start: 20080101
  2. MIRENA [Suspect]
     Dosage: 20 MCG/24HR, CONT
     Route: 015
     Dates: start: 20080101, end: 20090101

REACTIONS (10)
  - BACK PAIN [None]
  - MUSCLE SPASMS [None]
  - BACK DISORDER [None]
  - DEVICE BREAKAGE [None]
  - DEVICE DISLOCATION [None]
  - PAIN [None]
  - PELVIC INFLAMMATORY DISEASE [None]
  - ABASIA [None]
  - VAGINAL DISCHARGE [None]
  - INFECTION [None]
